FAERS Safety Report 20872787 (Version 15)
Quarter: 2023Q2

REPORT INFORMATION
  Report Type: Spontaneous
  Country: US (occurrence: US)
  Receive Date: 20220525
  Receipt Date: 20230605
  Transmission Date: 20230722
  Serious: Yes (Hospitalization, Other)
  Sender: FDA-Public Use
  Company Number: US-PFIZER INC-202200742344

PATIENT
  Age: 57 Year
  Sex: Female
  Weight: 49.44 kg

DRUGS (7)
  1. IBRANCE [Suspect]
     Active Substance: PALBOCICLIB
     Indication: Breast cancer metastatic
     Dosage: 100 MG, CYCLIC (EVERY MORNING FOR THREE WEEKS AND THEN OFF ONE WEEK)
     Dates: start: 202007
  2. LETROZOLE [Suspect]
     Active Substance: LETROZOLE
     Indication: Breast cancer stage IV
     Dosage: 2.5 MG, DAILY (2.5MG EVERY DAY)
     Dates: start: 202006
  3. FASLODEX [Concomitant]
     Active Substance: FULVESTRANT
     Dosage: MONTHLY INJECTION, ONE IN EACH BUTT CHEEK
     Dates: start: 202109
  4. ZOMETA [Concomitant]
     Active Substance: ZOLEDRONIC ACID
     Indication: Bone disorder
     Dosage: UNK, MONTHLY
     Route: 042
  5. ZOMETA [Concomitant]
     Active Substance: ZOLEDRONIC ACID
     Dosage: EVERY OTHER MONTH
     Route: 042
  6. ZOMETA [Concomitant]
     Active Substance: ZOLEDRONIC ACID
     Dosage: EVERY 6 MONTHS
     Route: 042
  7. OMEPRAZOLE [Concomitant]
     Active Substance: OMEPRAZOLE
     Dosage: UNK

REACTIONS (9)
  - Viral infection [Not Recovered/Not Resolved]
  - Sinusitis [Recovering/Resolving]
  - Nasal vestibulitis [Unknown]
  - Feeling abnormal [Unknown]
  - Anaemia [Unknown]
  - Asthenia [Unknown]
  - Retching [Unknown]
  - Illness [Unknown]
  - Aphonia [Unknown]

NARRATIVE: CASE EVENT DATE: 20220813
